FAERS Safety Report 8344864-8 (Version None)
Quarter: 2012Q2

REPORT INFORMATION
  Report Type: 
  Country: None (occurrence: None)
  Receive Date: 20120508
  Receipt Date: 20120501
  Transmission Date: 20120825
  Serious: Yes (Death, Hospitalization)
  Sender: FDA-Public Use
  Company Number: US-GLAXOSMITHKLINE-B0700579A

PATIENT
  Age: 59 Year
  Sex: Male
  Weight: 171.8 kg

DRUGS (8)
  1. HYDROCHLOROTHIAZIDE [Concomitant]
  2. LIPITOR [Concomitant]
  3. AVANDIA [Suspect]
     Indication: DIABETES MELLITUS
     Route: 048
     Dates: start: 20010605, end: 20040729
  4. INSULIN [Concomitant]
  5. GLYBURIDE [Concomitant]
  6. BENICAR [Concomitant]
  7. GLUCOVANCE [Concomitant]
  8. AVANDAMET [Suspect]
     Indication: DIABETES MELLITUS
     Dosage: 2TAB PER DAY
     Route: 048
     Dates: start: 20040729, end: 20041229

REACTIONS (6)
  - PICKWICKIAN SYNDROME [None]
  - ATRIAL FIBRILLATION [None]
  - MYOCARDIAL INFARCTION [None]
  - RESPIRATORY FAILURE [None]
  - PNEUMONIA [None]
  - CARDIAC FAILURE CONGESTIVE [None]
